FAERS Safety Report 5874283-5 (Version None)
Quarter: 2008Q3

REPORT INFORMATION
  Report Type: 
  Country: None (occurrence: None)
  Receive Date: 20080908
  Receipt Date: 20080829
  Transmission Date: 20090109
  Serious: Yes (Hospitalization)
  Sender: FDA-Public Use
  Company Number: JP-AMGEN-US299817

PATIENT
  Sex: Female

DRUGS (11)
  1. ENBREL [Suspect]
     Indication: RHEUMATOID ARTHRITIS
     Route: 058
     Dates: start: 20070407, end: 20080620
  2. WARFARIN POTASSIUM [Suspect]
     Indication: VENOUS THROMBOSIS
     Route: 048
     Dates: start: 20070407
  3. BUCILLAMINE [Concomitant]
     Indication: RHEUMATOID ARTHRITIS
     Route: 048
     Dates: start: 20070402
  4. BUCILLAMINE [Concomitant]
     Dosage: NOT SPECIFIED
     Route: 048
     Dates: start: 20061201
  5. LANSOPRAZOLE [Concomitant]
     Indication: REFLUX OESOPHAGITIS
     Route: 048
     Dates: start: 20070407
  6. FOLIAMIN [Concomitant]
     Route: 048
     Dates: start: 20070407
  7. ALFAROL [Concomitant]
     Indication: OSTEOPOROSIS
     Route: 048
     Dates: start: 20070407
  8. RHEUMATREX [Concomitant]
     Indication: RHEUMATOID ARTHRITIS
     Dosage: NOT SPECIFIED
     Route: 048
     Dates: start: 20061201
  9. RHEUMATREX [Concomitant]
     Dosage: NOT SPECIFIED
     Route: 048
     Dates: start: 20070402, end: 20070512
  10. RHEUMATREX [Concomitant]
     Dosage: NOT SPECIFIED
     Route: 048
     Dates: start: 20070512
  11. PREDNISOLONE [Concomitant]
     Indication: RHEUMATOID ARTHRITIS
     Route: 048
     Dates: start: 20070402

REACTIONS (3)
  - BLOOD PRESSURE DECREASED [None]
  - ENTEROCOLITIS [None]
  - GASTROINTESTINAL HAEMORRHAGE [None]
